FAERS Safety Report 17036207 (Version 1)
Quarter: 2019Q4

REPORT INFORMATION
  Report Type: Spontaneous
  Country: US (occurrence: US)
  Receive Date: 20191015
  Receipt Date: 20191015
  Transmission Date: 20200122
  Serious: Yes (Hospitalization)
  Sender: FDA-Public Use
  Company Number: None

PATIENT
  Age: 34 Year
  Sex: Male

DRUGS (8)
  1. FLUTICASONE. [Concomitant]
     Active Substance: FLUTICASONE
  2. LEVOTHYROXINE. [Concomitant]
     Active Substance: LEVOTHYROXINE
  3. QUETIAPINE. [Concomitant]
     Active Substance: QUETIAPINE
  4. TOBI PODHALER [Suspect]
     Active Substance: TOBRAMYCIN
     Indication: CYSTIC FIBROSIS
     Dosage: ?          OTHER FREQUENCY:BID X 28 DAYS;OTHER ROUTE:PODHALER?
  5. ALBUTEROL. [Concomitant]
     Active Substance: ALBUTEROL
  6. HYDOXYCHLOR [Concomitant]
  7. BUSPIRONE [Concomitant]
     Active Substance: BUSPIRONE HYDROCHLORIDE
  8. OXYCODONE [Concomitant]
     Active Substance: OXYCODONE

REACTIONS (1)
  - Cystic fibrosis [None]

NARRATIVE: CASE EVENT DATE: 2019
